FAERS Safety Report 25298221 (Version 3)
Quarter: 2025Q2

REPORT INFORMATION
  Report Type: Spontaneous
  Country: US (occurrence: US)
  Receive Date: 20250512
  Receipt Date: 20250522
  Transmission Date: 20250717
  Serious: Yes (Hospitalization)
  Sender: UCB
  Company Number: US-UCBSA-2024040230

PATIENT
  Sex: Male
  Weight: 106.58 kg

DRUGS (1)
  1. CIMZIA [Suspect]
     Active Substance: CERTOLIZUMAB PEGOL
     Indication: Ankylosing spondylitis
     Dosage: 400 MILLIGRAM, EV 4 WEEKS
     Route: 058
     Dates: start: 202109

REACTIONS (6)
  - Back pain [Unknown]
  - Spinal laminectomy [Unknown]
  - Arthropod sting [Unknown]
  - Peripheral swelling [Unknown]
  - Product availability issue [Unknown]
  - Intentional dose omission [Unknown]
